FAERS Safety Report 12996051 (Version 1)
Quarter: 2016Q4

REPORT INFORMATION
  Report Type: Spontaneous
  Country: AU (occurrence: AU)
  Receive Date: 20161202
  Receipt Date: 20161202
  Transmission Date: 20170207
  Serious: Yes (Hospitalization)
  Sender: FDA-Public Use
  Company Number: AU-ALLERGAN-1679015US

PATIENT
  Age: 1 Day
  Sex: Female
  Weight: 3.7 kg

DRUGS (4)
  1. ESCITALOPRAM OXALATE - BP [Suspect]
     Active Substance: ESCITALOPRAM OXALATE
     Indication: MATERNAL EXPOSURE TIMING UNSPECIFIED
     Route: 064
  2. ELEVIT [Concomitant]
     Active Substance: FOLIC ACID\IRON\MINERALS\VITAMINS
     Indication: MATERNAL EXPOSURE TIMING UNSPECIFIED
     Route: 064
  3. VITAMIN C [Concomitant]
     Active Substance: ASCORBIC ACID
     Indication: MATERNAL EXPOSURE TIMING UNSPECIFIED
     Route: 064
  4. SEROQUEL XR [Suspect]
     Active Substance: QUETIAPINE FUMARATE
     Indication: MATERNAL EXPOSURE TIMING UNSPECIFIED
     Route: 064

REACTIONS (11)
  - Exposure during breast feeding [Unknown]
  - Maternal drugs affecting foetus [None]
  - Neonatal respiratory distress syndrome [None]
  - Somnolence [None]
  - Caesarean section [None]
  - Respiratory distress [Recovered/Resolved]
  - Foetal exposure during pregnancy [Unknown]
  - Blood glucose decreased [Recovered/Resolved]
  - Drug withdrawal syndrome neonatal [None]
  - Withdrawal syndrome [Recovered/Resolved]
  - Hyperreflexia [None]

NARRATIVE: CASE EVENT DATE: 20151214
